FAERS Safety Report 20618307 (Version 1)
Quarter: 2022Q1

REPORT INFORMATION
  Report Type: Spontaneous
  Country: US (occurrence: None)
  Receive Date: 20220321
  Receipt Date: 20220321
  Transmission Date: 20220424
  Serious: No
  Sender: FDA-Public Use
  Company Number: 2022A109907

PATIENT
  Age: 25043 Day
  Sex: Female
  Weight: 68 kg

DRUGS (2)
  1. FARXIGA [Suspect]
     Active Substance: DAPAGLIFLOZIN PROPANEDIOL
     Indication: Insulin-requiring type 2 diabetes mellitus
     Route: 048
     Dates: start: 202112
  2. CARVEDILOL [Concomitant]
     Active Substance: CARVEDILOL
     Indication: Type 2 diabetes mellitus
     Route: 048

REACTIONS (4)
  - Blood pressure increased [Unknown]
  - Chest pain [Unknown]
  - Somnolence [Unknown]
  - Drug hypersensitivity [Unknown]

NARRATIVE: CASE EVENT DATE: 20220309
